FAERS Safety Report 19303846 (Version 2)
Quarter: 2021Q2

REPORT INFORMATION
  Report Type: Spontaneous
  Country: US (occurrence: US)
  Receive Date: 20210525
  Receipt Date: 20210603
  Transmission Date: 20210717
  Serious: No
  Sender: FDA-Public Use
  Company Number: US-PFIZER INC-2021417387

PATIENT
  Age: 64 Year
  Sex: Female

DRUGS (2)
  1. IBRANCE [Suspect]
     Active Substance: PALBOCICLIB
     Dosage: 100 MG, CYCLIC (ONCE DAILY FOR 2 WEEKS ONLY FOLLOWED BY 7 DAYS OFF)
     Dates: start: 20210408
  2. IBRANCE [Suspect]
     Active Substance: PALBOCICLIB
     Dosage: 125 MG
     Dates: start: 20210311

REACTIONS (5)
  - Fatigue [Unknown]
  - Blood count abnormal [Unknown]
  - Stomatitis [Unknown]
  - Dyspnoea exertional [Unknown]
  - Constipation [Unknown]
